FAERS Safety Report 9224202 (Version 2)
Quarter: 2013Q2

REPORT INFORMATION
  Report Type: Spontaneous
  Country: US (occurrence: US)
  Receive Date: 20130411
  Receipt Date: 20130417
  Transmission Date: 20140414
  Serious: No
  Sender: FDA-Public Use
  Company Number: US-PFIZER INC-2013109929

PATIENT
  Age: 87 Year
  Sex: Male
  Weight: 90.7 kg

DRUGS (3)
  1. LATANOPROST [Suspect]
     Indication: MACULAR DEGENERATION
     Dosage: 1 GTT, 1X/DAY IN EACH EYE
     Route: 047
     Dates: start: 201109
  2. LATANOPROST [Suspect]
     Indication: GLAUCOMA
  3. PANTOPRAZOLE [Concomitant]
     Indication: GASTROOESOPHAGEAL REFLUX DISEASE
     Dosage: 40 MG, 1X/DAY

REACTIONS (3)
  - Overdose [Unknown]
  - Product quality issue [Unknown]
  - Eye irritation [Unknown]
